FAERS Safety Report 25788518 (Version 1)
Quarter: 2025Q3

REPORT INFORMATION
  Report Type: Spontaneous
  Country: EU (occurrence: EU)
  Receive Date: 20250910
  Receipt Date: 20250910
  Transmission Date: 20251021
  Serious: Yes (Hospitalization)
  Sender: AIRGAS
  Company Number: EU-ALSI-2025000235

PATIENT
  Age: 43 Year
  Sex: Male

DRUGS (1)
  1. NITROUS OXIDE [Suspect]
     Active Substance: NITROUS OXIDE
     Indication: Product used for unknown indication
     Dates: start: 20240512, end: 20240513

REACTIONS (1)
  - Poisoning deliberate [Recovered/Resolved]

NARRATIVE: CASE EVENT DATE: 20240512
